FAERS Safety Report 6146422-2 (Version None)
Quarter: 2009Q2

REPORT INFORMATION
  Report Type: 
  Country: None (occurrence: None)
  Receive Date: 20090403
  Receipt Date: 20090319
  Transmission Date: 20091009
  Serious: Yes (Other)
  Sender: FDA-Public Use
  Company Number: 2009-193572-NL

PATIENT
  Age: 26 Year
  Sex: Female
  Weight: 56.7 kg

DRUGS (1)
  1. IMPLANON [Suspect]
     Indication: CONTRACEPTION
     Dosage: SUBDERMAL
     Route: 059

REACTIONS (2)
  - MUSCULAR WEAKNESS [None]
  - SENSORY LOSS [None]
